FAERS Safety Report 11988518 (Version 3)
Quarter: 2016Q1

REPORT INFORMATION
  Report Type: Spontaneous
  Country: FR (occurrence: FR)
  Receive Date: 20160202
  Receipt Date: 20160307
  Transmission Date: 20160526
  Serious: Yes (Hospitalization, Other)
  Sender: FDA-Public Use
  Company Number: FR-JNJFOC-20160119937

PATIENT
  Age: 56 Year
  Sex: Female
  Weight: 80 kg

DRUGS (3)
  1. RISPERDAL CONSTA [Suspect]
     Active Substance: RISPERIDONE
     Indication: SCHIZOPHRENIA
     Route: 030
     Dates: start: 201307, end: 201601
  2. ABILIFY [Concomitant]
     Active Substance: ARIPIPRAZOLE
     Route: 065
     Dates: start: 201106
  3. LEVOTHYROX [Concomitant]
     Active Substance: LEVOTHYROXINE
     Route: 065
     Dates: start: 1985

REACTIONS (2)
  - Mastitis [Recovered/Resolved with Sequelae]
  - Hyperprolactinaemia [Recovered/Resolved with Sequelae]

NARRATIVE: CASE EVENT DATE: 201511
